FAERS Safety Report 22650147 (Version 1)
Quarter: 2023Q2

REPORT INFORMATION
  Report Type: Spontaneous
  Country: US (occurrence: None)
  Receive Date: 20230627
  Receipt Date: 20230627
  Transmission Date: 20230721
  Serious: Yes (Hospitalization)
  Sender: FDA-Public Use
  Company Number: None

PATIENT
  Sex: Male

DRUGS (5)
  1. AMBRISENTAN [Suspect]
     Active Substance: AMBRISENTAN
     Indication: Pulmonary arterial hypertension
     Dosage: FREQUENCY : DAILY;?
     Route: 048
     Dates: start: 20220708
  2. AMBRISENTAN [Suspect]
     Active Substance: AMBRISENTAN
     Dosage: FREQUENCY : DAILY;?
     Route: 048
  3. ELIQUIS [Concomitant]
     Active Substance: APIXABAN
  4. ORENITRAM [Concomitant]
  5. TADALAFIL [Concomitant]

REACTIONS (1)
  - Therapy interrupted [None]
